FAERS Safety Report 10770262 (Version 3)
Quarter: 2017Q4

REPORT INFORMATION
  Report Type: Report from Study
  Country: TH (occurrence: TH)
  Receive Date: 20150206
  Receipt Date: 20171215
  Transmission Date: 20180320
  Serious: Yes (Death)
  Sender: FDA-Public Use
  Company Number: TH-IPSEN BIOPHARMACEUTICALS, INC.-2015-2112

PATIENT
  Age: 63 Year
  Sex: Male
  Weight: 43 kg

DRUGS (10)
  1. SIMVASTATIN. [Concomitant]
     Active Substance: SIMVASTATIN
     Dosage: 1/2 DOSAGE FORM
     Route: 048
     Dates: start: 20110421
  2. DYSPORT [Suspect]
     Active Substance: ABOBOTULINUMTOXINA
     Indication: TORTICOLLIS
     Dosage: 500 UNITS
     Route: 030
     Dates: start: 20130911, end: 20130911
  3. DEPAKINE [Concomitant]
     Active Substance: VALPROATE SODIUM
     Dosage: NOT REPORTED
     Route: 048
     Dates: start: 20110421
  4. DYSPORT [Suspect]
     Active Substance: ABOBOTULINUMTOXINA
     Indication: TORTICOLLIS
     Dosage: 500 UNITS
     Route: 030
     Dates: start: 20160326, end: 20160326
  5. DYSPORT [Suspect]
     Active Substance: ABOBOTULINUMTOXINA
     Dosage: 450 UNITS
     Route: 030
     Dates: start: 20140504, end: 20140504
  6. MYONAL [Concomitant]
     Active Substance: EPERISONE HYDROCHLORIDE
     Route: 048
     Dates: start: 20140226
  7. CLONAZEPAM. [Concomitant]
     Active Substance: CLONAZEPAM
     Dosage: 2 MG AT BEDTIME
     Route: 065
     Dates: start: 20120925
  8. DYSPORT [Suspect]
     Active Substance: ABOBOTULINUMTOXINA
     Indication: TORTICOLLIS
     Dosage: 500 UNITS
     Route: 030
     Dates: start: 20120925, end: 20120925
  9. DYSPORT [Suspect]
     Active Substance: ABOBOTULINUMTOXINA
     Dosage: 450 UNITS
     Route: 030
     Dates: start: 20141022, end: 20141022
  10. ASA GRADE 1 [Concomitant]
     Route: 048
     Dates: start: 20110421

REACTIONS (9)
  - Acute respiratory failure [Fatal]
  - Pneumonia [Fatal]
  - Cardiac arrest [Fatal]
  - Gait disturbance [Unknown]
  - Septic shock [Fatal]
  - Sepsis [Fatal]
  - Fatigue [Unknown]
  - Weight decreased [Unknown]
  - Dysphagia [Recovered/Resolved]

NARRATIVE: CASE EVENT DATE: 201410
